FAERS Safety Report 9222216 (Version 4)
Quarter: 2013Q2

REPORT INFORMATION
  Report Type: Spontaneous
  Country: US (occurrence: None)
  Receive Date: 20130408
  Receipt Date: 20130603
  Transmission Date: 20140414
  Serious: Yes (Disabling, Other)
  Sender: FDA-Public Use
  Company Number: 1303-429

PATIENT
  Age: 73 Year
  Sex: Female

DRUGS (1)
  1. EYLEA [Suspect]
     Indication: AGE-RELATED MACULAR DEGENERATION
     Dosage: 1 I 3M,INTRAVITREAL
     Dates: start: 20120505

REACTIONS (6)
  - Non-infectious endophthalmitis [None]
  - Vitrectomy [None]
  - Visual acuity reduced [None]
  - Vitritis [None]
  - Wrong technique in drug usage process [None]
  - Inadequate aseptic technique in use of product [None]
